FAERS Safety Report 20226617 (Version 2)
Quarter: 2021Q4

REPORT INFORMATION
  Report Type: Spontaneous
  Country: BR (occurrence: BR)
  Receive Date: 20211224
  Receipt Date: 20211229
  Transmission Date: 20220303
  Serious: Yes (Death)
  Sender: FDA-Public Use
  Company Number: BR-NOVARTISPH-NVSC2021BR295342

PATIENT
  Age: 75 Year
  Sex: Female

DRUGS (6)
  1. FEMARA [Suspect]
     Active Substance: LETROZOLE
     Indication: Breast cancer
     Dosage: 1 DOSAGE FORM, QD
     Route: 065
     Dates: start: 202111, end: 20211215
  2. FEMARA [Suspect]
     Active Substance: LETROZOLE
     Indication: Metastases to lung
  3. PREDNISONE [Concomitant]
     Active Substance: PREDNISONE
     Indication: Product used for unknown indication
     Dosage: UNK
     Route: 048
     Dates: end: 20211215
  4. NYSTATIN [Concomitant]
     Active Substance: NYSTATIN
     Indication: Immunodeficiency
     Dosage: UNK
     Route: 065
     Dates: end: 20211215
  5. ALBUTEROL [Concomitant]
     Active Substance: ALBUTEROL
     Indication: Dyspnoea
     Dosage: UNK (AFTER 25 NOV 2021)
     Route: 065
     Dates: end: 20211215
  6. CALCIUM CARBONATE [Concomitant]
     Active Substance: CALCIUM CARBONATE
     Indication: Product used for unknown indication
     Dosage: UNK, (AFTER 25 NOV 2021)
     Route: 065
     Dates: end: 20211215

REACTIONS (4)
  - Cardiac failure [Fatal]
  - Respiratory failure [Fatal]
  - Respiratory arrest [Fatal]
  - Vitamin D decreased [Unknown]

NARRATIVE: CASE EVENT DATE: 20211216
